FAERS Safety Report 7726055-4 (Version None)
Quarter: 2011Q3

REPORT INFORMATION
  Report Type: 
  Country: None (occurrence: None)
  Receive Date: 20110902
  Receipt Date: 20110826
  Transmission Date: 20111222
  Serious: Yes (Other)
  Sender: FDA-Public Use
  Company Number: GB-AMGEN-GBRSP2011040946

PATIENT
  Sex: Male
  Weight: 67 kg

DRUGS (5)
  1. MESALAZIN [Concomitant]
     Indication: CROHN'S DISEASE
     Dosage: 1 G, UNK
     Route: 048
     Dates: start: 20080101
  2. SIMVASTATIN [Concomitant]
     Indication: BLOOD CHOLESTEROL INCREASED
     Dosage: 20 MG, UNK
     Route: 048
     Dates: start: 20080101
  3. ALFACALCIDOL [Concomitant]
     Indication: BONE DISORDER
     Dosage: 0.25 MUG, UNK
     Route: 048
     Dates: start: 20090101
  4. ARANESP [Suspect]
     Indication: RENAL FAILURE CHRONIC
     Dosage: UNK UNK, QWK
     Route: 058
     Dates: start: 20101222, end: 20110811
  5. SODIUM BICARBONATE [Concomitant]
     Indication: ACIDOSIS
     Dosage: 600 MG, UNK
     Route: 048
     Dates: start: 20100101

REACTIONS (2)
  - APLASIA PURE RED CELL [None]
  - DISEASE PROGRESSION [None]
